FAERS Safety Report 8211170-1 (Version None)
Quarter: 2012Q1

REPORT INFORMATION
  Report Type: 
  Country: None (occurrence: None)
  Receive Date: 20120315
  Receipt Date: 20120305
  Transmission Date: 20120608
  Serious: Yes (Other)
  Sender: FDA-Public Use
  Company Number: CA-JNJFOC-20120303038

PATIENT
  Sex: Female
  Weight: 61 kg

DRUGS (7)
  1. METHOTREXATE [Concomitant]
     Route: 058
     Dates: start: 20050101
  2. REMICADE [Suspect]
     Indication: CROHN'S DISEASE
     Route: 042
     Dates: start: 20120305
  3. VITAMIN B-12 [Concomitant]
     Dosage: 1000UG
     Route: 058
     Dates: start: 20050101
  4. LYRICA [Concomitant]
     Route: 048
     Dates: start: 20120101
  5. AMITRIPTYLINE HCL [Concomitant]
     Dosage: 3 TABLETS AT BED TIME
     Route: 065
     Dates: start: 20090101
  6. REMICADE [Suspect]
     Route: 042
     Dates: start: 20090101
  7. BENADRYL [Concomitant]
     Indication: PREMEDICATION
     Route: 065

REACTIONS (8)
  - CHEST DISCOMFORT [None]
  - HYPERTENSION [None]
  - INFUSION RELATED REACTION [None]
  - COUGH [None]
  - DYSPNOEA [None]
  - TACHYCARDIA [None]
  - FLUSHING [None]
  - NAUSEA [None]
